FAERS Safety Report 8361666-7 (Version None)
Quarter: 2012Q2

REPORT INFORMATION
  Report Type: 
  Country: None (occurrence: None)
  Receive Date: 20120515
  Receipt Date: 20120130
  Transmission Date: 20120825
  Serious: No
  Sender: FDA-Public Use
  Company Number: US-ABBOTT-12P-163-0900226-00

PATIENT
  Sex: Female

DRUGS (1)
  1. PROMETRIUM [Suspect]
     Indication: METRORRHAGIA
     Dosage: 12 PILLS FOR 2ND HALF OF MENTRUAL CYCLE

REACTIONS (2)
  - INFLAMMATION [None]
  - THERAPEUTIC RESPONSE UNEXPECTED [None]
